FAERS Safety Report 10234119 (Version 2)
Quarter: 2014Q3

REPORT INFORMATION
  Report Type: Spontaneous
  Country: US (occurrence: US)
  Receive Date: 20140612
  Receipt Date: 20140714
  Transmission Date: 20150326
  Serious: Yes (Other)
  Sender: FDA-Public Use
  Company Number: US-GLAXOSMITHKLINE-A1076030A

PATIENT
  Age: 75 Year
  Sex: Female

DRUGS (2)
  1. UNKNOWN [Concomitant]
     Active Substance: UNSPECIFIED INGREDIENT
  2. ADVAIR HFA [Suspect]
     Active Substance: FLUTICASONE PROPIONATE\SALMETEROL XINAFOATE
     Indication: CHRONIC OBSTRUCTIVE PULMONARY DISEASE
     Dosage: 1PUFF TWICE PER DAY
     Route: 055

REACTIONS (5)
  - Burning sensation [Not Recovered/Not Resolved]
  - Choking [Unknown]
  - Dyspepsia [Not Recovered/Not Resolved]
  - Product quality issue [Unknown]
  - Foreign body aspiration [Unknown]

NARRATIVE: CASE EVENT DATE: 20140605
